FAERS Safety Report 6634473-0 (Version None)
Quarter: 2010Q1

REPORT INFORMATION
  Report Type: 
  Country: None (occurrence: None)
  Receive Date: 20100225
  Receipt Date: 20080930
  Transmission Date: 20100710
  Serious: Yes (Other)
  Sender: FDA-Public Use
  Company Number: US-JNJFOC-20081000506

PATIENT
  Age: 53 Year
  Sex: Female
  Weight: 71.6683 kg

DRUGS (8)
  1. IBUPROFEN [Suspect]
     Indication: RHEUMATOID ARTHRITIS
     Dosage: UP TO 9 A DAY
  2. TYLENOL ARTHRITIS (ACETAMINOPHEN) [Concomitant]
  3. LORAZEPAM [Concomitant]
  4. LEXAPRO [Concomitant]
  5. PREDNISONE [Concomitant]
  6. SUCRALFATE [Concomitant]
  7. SULFASALAZINE [Concomitant]
  8. SYNTHROID [Concomitant]

REACTIONS (2)
  - ANAEMIA [None]
  - GASTRITIS [None]
